FAERS Safety Report 12689497 (Version 1)
Quarter: 2016Q3

REPORT INFORMATION
  Report Type: Report from Study
  Country: US (occurrence: US)
  Receive Date: 20160826
  Receipt Date: 20160826
  Transmission Date: 20161109
  Serious: Yes (Hospitalization)
  Sender: FDA-Public Use
  Company Number: US-KAMADA LIMITED-2015US006435

PATIENT

DRUGS (7)
  1. GLASSIA [Suspect]
     Active Substance: .ALPHA.1-PROTEINASE INHIBITOR HUMAN
     Indication: ALPHA-1 ANTI-TRYPSIN DEFICIENCY
     Dosage: 60 MG/KG, WEEKLY
     Dates: start: 201501
  2. HUMALOG [Concomitant]
     Active Substance: INSULIN LISPRO
  3. COUMADIN [Concomitant]
     Active Substance: WARFARIN SODIUM
  4. ALDACTONE [Concomitant]
     Active Substance: SPIRONOLACTONE
  5. LANTUS [Concomitant]
     Active Substance: INSULIN GLARGINE
  6. LASIX [Concomitant]
     Active Substance: FUROSEMIDE
  7. VITAMIN D                          /00107901/ [Concomitant]
     Active Substance: ERGOCALCIFEROL

REACTIONS (1)
  - Pneumonia [Recovered/Resolved]

NARRATIVE: CASE EVENT DATE: 20150626
